FAERS Safety Report 7621058-2 (Version None)
Quarter: 2011Q3

REPORT INFORMATION
  Report Type: 
  Country: None (occurrence: None)
  Receive Date: 20110719
  Receipt Date: 20101119
  Transmission Date: 20111222
  Serious: No
  Sender: FDA-Public Use
  Company Number: US-KINGPHARMUSA00001-K201001417

PATIENT
  Age: 61 Year
  Sex: Female
  Weight: 64.853 kg

DRUGS (4)
  1. CYTOMEL [Concomitant]
     Indication: THYROID HORMONE REPLACEMENT THERAPY
     Dosage: 2.5 MCG, BID
     Route: 048
  2. TRAZODONE [Concomitant]
     Indication: DEPRESSION
     Dosage: UNK
  3. LEVOXYL [Suspect]
     Indication: THYROID HORMONE REPLACEMENT THERAPY
     Dosage: 88 MCG, QD
     Route: 048
  4. ZOLOFT [Concomitant]
     Indication: DEPRESSION
     Dosage: UNK

REACTIONS (11)
  - MALABSORPTION [None]
  - CHILLS [None]
  - DISTURBANCE IN ATTENTION [None]
  - IMPAIRED WORK ABILITY [None]
  - PAIN IN EXTREMITY [None]
  - MUSCLE TWITCHING [None]
  - BALANCE DISORDER [None]
  - FATIGUE [None]
  - MYALGIA [None]
  - ASTHENIA [None]
  - DRUG INEFFECTIVE [None]
